FAERS Safety Report 4920723-5 (Version None)
Quarter: 2006Q1

REPORT INFORMATION
  Report Type: 
  Country: None (occurrence: None)
  Receive Date: 20060223
  Receipt Date: 20060214
  Transmission Date: 20060701
  Serious: Yes (Life-Threatening, Hospitalization)
  Sender: FDA-Public Use
  Company Number: JP-ABBOTT-06P-087-0325198-00

PATIENT
  Age: 85 Year
  Sex: Female
  Weight: 50 kg

DRUGS (15)
  1. CLARITHROMYCIN [Suspect]
     Indication: PNEUMONIA CHLAMYDIAL
     Route: 048
     Dates: start: 20051108, end: 20051114
  2. HUSCODE [Concomitant]
     Indication: DRUG USE FOR UNKNOWN INDICATION
     Route: 048
     Dates: start: 20051108
  3. TULOBUTEROL [Concomitant]
     Indication: DRUG USE FOR UNKNOWN INDICATION
     Route: 048
     Dates: start: 20051108
  4. AMLODIPINE BESYLATE [Concomitant]
     Indication: HYPERTENSION
     Route: 048
  5. SPIRONOLACTONE [Concomitant]
     Indication: CARDIAC FAILURE CHRONIC
     Route: 048
  6. FUROSEMIDE [Concomitant]
     Indication: CARDIAC FAILURE CHRONIC
     Route: 048
  7. ISOSORBIDE DINITRATE [Concomitant]
     Indication: CARDIAC FAILURE CHRONIC
     Route: 061
  8. MILNACIPRAN HYDROCHLORIDE [Concomitant]
     Indication: DEPRESSION
     Route: 048
     Dates: start: 20050309
  9. CLOTIAZEPAM [Concomitant]
     Indication: ANXIETY DISORDER
     Route: 048
  10. NIZATIDINE [Concomitant]
     Indication: GASTRITIS
     Route: 048
  11. DONEPEZIL HYDROCHLORIDE [Concomitant]
     Indication: DEMENTIA
     Route: 048
     Dates: start: 20050419
  12. CILOSTAZOL [Concomitant]
     Indication: ARTERIOSCLEROSIS
     Route: 048
  13. SENNOSIDE [Concomitant]
     Indication: CONSTIPATION
     Route: 048
  14. TRIAZOLAM [Concomitant]
     Indication: INSOMNIA
     Route: 048
     Dates: start: 20050824
  15. ETODOLAC [Concomitant]
     Indication: DRUG USE FOR UNKNOWN INDICATION
     Route: 048
     Dates: start: 20051108

REACTIONS (4)
  - BLOOD CREATINE PHOSPHOKINASE INCREASED [None]
  - DEHYDRATION [None]
  - GAIT DISTURBANCE [None]
  - MUSCULAR WEAKNESS [None]
